FAERS Safety Report 5036202-3 (Version None)
Quarter: 2006Q2

REPORT INFORMATION
  Report Type: 
  Country: None (occurrence: None)
  Receive Date: 20060531
  Receipt Date: 20060130
  Transmission Date: 20061013
  Serious: Yes (Hospitalization)
  Sender: FDA-Public Use
  Company Number: 200610464GDS

PATIENT
  Age: 68 Year
  Sex: Female

DRUGS (4)
  1. NIFEDIPINE [Suspect]
     Indication: CARDIAC DISORDER
     Dosage: 30 MG, TOTAL DAILY, ORAL
     Route: 048
  2. NIFEDIPINE [Suspect]
     Indication: CHEST PAIN
     Dosage: 30 MG, TOTAL DAILY, ORAL
     Route: 048
  3. PROCARDIA XL [Suspect]
     Indication: CARDIAC DISORDER
     Dosage: 30 MG, TOTAL DAILY, ORAL
     Route: 048
  4. PROCARDIA XL [Suspect]
     Indication: CHEST PAIN
     Dosage: 30 MG, TOTAL DAILY, ORAL
     Route: 048

REACTIONS (2)
  - BLOOD PRESSURE INCREASED [None]
  - CHEST PAIN [None]
